FAERS Safety Report 5503260-9 (Version None)
Quarter: 2007Q4

REPORT INFORMATION
  Report Type: 
  Country: None (occurrence: None)
  Receive Date: 20071031
  Receipt Date: 20071022
  Transmission Date: 20080405
  Serious: Yes (Hospitalization, Disabling, Other)
  Sender: FDA-Public Use
  Company Number: US-PFIZER INC-2007043800

PATIENT
  Sex: Female

DRUGS (1)
  1. CELEBREX [Suspect]
     Indication: RHEUMATOID ARTHRITIS

REACTIONS (3)
  - CARDIAC FAILURE [None]
  - RHEUMATOID ARTHRITIS [None]
  - SLEEP DISORDER [None]
